FAERS Safety Report 5611827-2 (Version None)
Quarter: 2008Q1

REPORT INFORMATION
  Report Type: 
  Country: None (occurrence: None)
  Receive Date: 20080204
  Receipt Date: 20080125
  Transmission Date: 20080703
  Serious: Yes (Death)
  Sender: FDA-Public Use
  Company Number: US-JNJFOC-20080102857

PATIENT
  Sex: Female
  Weight: 123.38 kg

DRUGS (2)
  1. ORTHO EVRA [Suspect]
     Indication: CONTRACEPTION
     Route: 062
  2. PROZAC [Concomitant]

REACTIONS (1)
  - CEREBROVASCULAR ACCIDENT [None]
